FAERS Safety Report 6988364-6 (Version None)
Quarter: 2010Q3

REPORT INFORMATION
  Report Type: 
  Country: None (occurrence: None)
  Receive Date: 20100916
  Receipt Date: 20100910
  Transmission Date: 20110219
  Serious: Yes (Hospitalization, Other)
  Sender: FDA-Public Use
  Company Number: US-ABBOTT-10P-163-0629577-00

PATIENT
  Sex: Female
  Weight: 69.916 kg

DRUGS (39)
  1. HUMIRA [Suspect]
     Indication: COLITIS ULCERATIVE
     Route: 058
     Dates: start: 20080403, end: 20091110
  2. H1N1 VACCINE [Suspect]
     Indication: ANTIVIRAL PROPHYLAXIS
     Route: 050
     Dates: start: 20091106, end: 20091106
  3. METFORMIN [Concomitant]
     Indication: DIABETES MELLITUS
     Dates: start: 20070101
  4. METHOTREXATE [Concomitant]
     Indication: COLITIS ULCERATIVE
     Route: 048
     Dates: start: 20080101, end: 20080101
  5. UNKNOWN CANCER DRIP MEDICATION [Concomitant]
     Indication: COLITIS ULCERATIVE
  6. PREDNISONE [Concomitant]
     Indication: COLITIS ULCERATIVE
     Dosage: USING MEDICATION OFF AND ON
     Dates: end: 20091103
  7. CANASA SUPPOSITORIES [Concomitant]
     Indication: COLITIS ULCERATIVE
     Route: 054
     Dates: end: 20090101
  8. AMITRIPTYLINE HCL [Concomitant]
     Indication: FIBROMYALGIA
  9. AMITRIPTYLINE HCL [Concomitant]
     Indication: INSOMNIA
  10. VICODIN [Concomitant]
     Indication: FIBROMYALGIA
     Dosage: 7.5MG/750MG, AS NEEDED
  11. VICODIN [Concomitant]
     Indication: PAIN
  12. KLONOPIN [Concomitant]
     Indication: ANXIETY
  13. XANAX [Concomitant]
     Indication: DEPRESSION
  14. ZANAFLEX [Concomitant]
     Indication: MYALGIA
     Dosage: 3 TO 6 PILLS DAILY, AS NEEDED
     Route: 048
  15. ZANAFLEX [Concomitant]
     Indication: OEDEMA PERIPHERAL
  16. ZANAFLEX [Concomitant]
     Indication: FIBROMYALGIA
  17. LIALDA [Concomitant]
     Indication: FIBROMYALGIA
     Route: 048
     Dates: start: 20100101
  18. ADVAIR DISKUS 100/50 [Concomitant]
     Indication: ASTHMA
  19. ACE INHIBITOR NOS [Concomitant]
     Indication: PRODUCT USED FOR UNKNOWN INDICATION
  20. LISINOPRIL [Concomitant]
     Indication: PRODUCT USED FOR UNKNOWN INDICATION
     Dosage: DAILY
  21. LISINOPRIL [Concomitant]
     Dosage: DAILY
  22. DIOVAN [Concomitant]
     Indication: PRODUCT USED FOR UNKNOWN INDICATION
  23. HYDRODORE [Concomitant]
     Indication: PRODUCT USED FOR UNKNOWN INDICATION
  24. ALPRAZELAM [Concomitant]
     Indication: PRODUCT USED FOR UNKNOWN INDICATION
  25. TIZAIDIZE [Concomitant]
     Indication: PRODUCT USED FOR UNKNOWN INDICATION
  26. LEVSIN [Concomitant]
     Indication: PRODUCT USED FOR UNKNOWN INDICATION
  27. METOPROLOL TARTRATE [Concomitant]
     Indication: PRODUCT USED FOR UNKNOWN INDICATION
  28. GLUCOPHAGE [Concomitant]
     Indication: PRODUCT USED FOR UNKNOWN INDICATION
  29. METROPOLYN [Concomitant]
     Indication: PRODUCT USED FOR UNKNOWN INDICATION
  30. NITROGLYCERIN [Concomitant]
     Indication: PRODUCT USED FOR UNKNOWN INDICATION
  31. LOPRESSOR [Concomitant]
     Indication: PALPITATIONS
  32. ADVAIR DISKUS 100/50 [Concomitant]
     Indication: PRODUCT USED FOR UNKNOWN INDICATION
     Dosage: 250/50, 1 PUFF, BID
  33. PROVENTIL [Concomitant]
     Indication: PRODUCT USED FOR UNKNOWN INDICATION
  34. DIPHENOXYLATE [Concomitant]
     Indication: PRODUCT USED FOR UNKNOWN INDICATION
  35. SIMVASTATIN [Concomitant]
     Indication: PRODUCT USED FOR UNKNOWN INDICATION
  36. ASACOL [Concomitant]
     Indication: COLITIS ULCERATIVE
  37. FLU VACCINATION [Concomitant]
     Indication: INFLUENZA
  38. PROTONIX [Concomitant]
     Indication: PROPHYLAXIS AGAINST GASTROINTESTINAL ULCER
  39. ANTICOAGULANT [Concomitant]
     Indication: THROMBOSIS PROPHYLAXIS

REACTIONS (49)
  - ABASIA [None]
  - ABDOMINAL PAIN LOWER [None]
  - ANAEMIA [None]
  - ANAL STENOSIS [None]
  - ARTHRALGIA [None]
  - ASTHENIA [None]
  - ASTHMA [None]
  - ATELECTASIS [None]
  - BACK PAIN [None]
  - BLOOD CREATINE PHOSPHOKINASE INCREASED [None]
  - BLOOD GLUCOSE INCREASED [None]
  - BREAST PAIN [None]
  - CHEST PAIN [None]
  - COLITIS ULCERATIVE [None]
  - CONFUSIONAL STATE [None]
  - COUGH [None]
  - DIARRHOEA [None]
  - DIZZINESS [None]
  - DYSURIA [None]
  - FALL [None]
  - FATIGUE [None]
  - FLUSHING [None]
  - FREQUENT BOWEL MOVEMENTS [None]
  - HAEMATOCHEZIA [None]
  - HEPATOMEGALY [None]
  - HYPERHIDROSIS [None]
  - HYPERSOMNIA [None]
  - HYPERTENSION [None]
  - HYPOKALAEMIA [None]
  - LEUKOCYTOSIS [None]
  - LIPIDS INCREASED [None]
  - LOSS OF CONSCIOUSNESS [None]
  - MALAISE [None]
  - MALNUTRITION [None]
  - MOBILITY DECREASED [None]
  - MYALGIA [None]
  - NIGHT SWEATS [None]
  - OROPHARYNGEAL PAIN [None]
  - PHARYNGITIS [None]
  - PNEUMONIA [None]
  - PROCTALGIA [None]
  - PYREXIA [None]
  - RECTAL HAEMORRHAGE [None]
  - RESPIRATORY RATE INCREASED [None]
  - RHABDOMYOLYSIS [None]
  - TACHYCARDIA [None]
  - URINE ODOUR ABNORMAL [None]
  - WEIGHT DECREASED [None]
  - WHEEZING [None]
